FAERS Safety Report 8797881 (Version 1)
Quarter: 2012Q4

REPORT INFORMATION
  Report Type: Report from Study
  Country: US (occurrence: US)
  Receive Date: 20120919
  Receipt Date: 20120919
  Transmission Date: 20130627
  Serious: Yes (Hospitalization)
  Sender: FDA-Public Use
  Company Number: US-US-EMD SERONO, INC.-7160981

PATIENT
  Sex: Female

DRUGS (1)
  1. REBIF [Suspect]
     Indication: PRODUCT USED FOR UNKNOWN INDICATION
     Route: 058
     Dates: start: 20100222

REACTIONS (5)
  - Urinary tract infection [Unknown]
  - White blood cell count increased [Unknown]
  - Full blood count abnormal [Unknown]
  - Depressed mood [Recovered/Resolved]
  - Injection site erythema [Unknown]
